FAERS Safety Report 12364512 (Version 1)
Quarter: 2016Q2

REPORT INFORMATION
  Report Type: Spontaneous
  Country: US (occurrence: None)
  Receive Date: 20160512
  Receipt Date: 20160512
  Transmission Date: 20160815
  Serious: Yes (Hospitalization)
  Sender: FDA-Public Use
  Company Number: None

PATIENT
  Age: 35 Year
  Sex: Female
  Weight: 70 kg

DRUGS (1)
  1. CISPLATIN. [Suspect]
     Active Substance: CISPLATIN
     Dosage: PT RECEIVED WEEKLY CISPLATIN, C1D1 ON 3/14
     Dates: end: 20160418

REACTIONS (6)
  - Fatigue [None]
  - Malaise [None]
  - Drug intolerance [None]
  - Vaginal haemorrhage [None]
  - Anaemia [None]
  - Abdominal pain [None]

NARRATIVE: CASE EVENT DATE: 20160429
